FAERS Safety Report 19186966 (Version 3)
Quarter: 2022Q1

REPORT INFORMATION
  Report Type: Spontaneous
  Country: US (occurrence: US)
  Receive Date: 20210428
  Receipt Date: 20220106
  Transmission Date: 20220423
  Serious: No
  Sender: FDA-Public Use
  Company Number: US-ORGANON-O2104USA001444

PATIENT
  Age: 34 Year
  Sex: Female
  Weight: 83.5 kg

DRUGS (1)
  1. NEXPLANON [Suspect]
     Active Substance: ETONOGESTREL
     Indication: Contraception
     Dosage: 1 IMPLANT, CYCLIC (EVERY 3 YEARS)
     Route: 059
     Dates: start: 201903, end: 202012

REACTIONS (2)
  - Migraine [Unknown]
  - Maternal exposure before pregnancy [Unknown]

NARRATIVE: CASE EVENT DATE: 20190101
